APPROVED DRUG PRODUCT: LEVAQUIN
Active Ingredient: LEVOFLOXACIN
Strength: 750MG **Federal Register determination that product was not discontinued or withdrawn for safety or effectiveness reasons**
Dosage Form/Route: TABLET;ORAL
Application: N020634 | Product #003
Applicant: JANSSEN PHARMACEUTICALS INC
Approved: Sep 8, 2000 | RLD: Yes | RS: No | Type: DISCN